FAERS Safety Report 5312987-3 (Version None)
Quarter: 2007Q2

REPORT INFORMATION
  Report Type: 
  Country: None (occurrence: None)
  Receive Date: 20070424
  Receipt Date: 20070408
  Transmission Date: 20071010
  Serious: Yes (Hospitalization)
  Sender: FDA-Public Use
  Company Number: CIO07005345

PATIENT
  Age: 86 Year
  Sex: Male
  Weight: 59 kg

DRUGS (1)
  1. VAPOSTEAM [Suspect]
     Dosage: ORAL
     Route: 048
     Dates: start: 20070408, end: 20070408

REACTIONS (5)
  - ACCIDENTAL EXPOSURE [None]
  - BALANCE DISORDER [None]
  - INCORRECT ROUTE OF DRUG ADMINISTRATION [None]
  - VOMITING [None]
  - WRONG DRUG ADMINISTERED [None]
